FAERS Safety Report 11746279 (Version 1)
Quarter: 2015Q4

REPORT INFORMATION
  Report Type: Spontaneous
  Country: US (occurrence: None)
  Receive Date: 20151116
  Receipt Date: 20151116
  Transmission Date: 20160304
  Serious: Yes (Other)
  Sender: FDA-Public Use
  Company Number: None

PATIENT
  Age: 26 Year
  Sex: Female
  Weight: 72.58 kg

DRUGS (3)
  1. SEASONIQUE BIRTH CONTROL [Concomitant]
  2. ZOLOFT [Suspect]
     Active Substance: SERTRALINE HYDROCHLORIDE
     Indication: DEPRESSION
     Dosage: 1 PILL
     Route: 048
     Dates: start: 20151102, end: 20151115
  3. SERTALINE HC1 TABLETS/ MFR UNKNOWN [Concomitant]
     Active Substance: SERTRALINE HYDROCHLORIDE

REACTIONS (4)
  - Product quality issue [None]
  - Anxiety [None]
  - Drug withdrawal syndrome [None]
  - Dizziness [None]

NARRATIVE: CASE EVENT DATE: 20151115
